FAERS Safety Report 10866131 (Version 1)
Quarter: 2015Q1

REPORT INFORMATION
  Report Type: Spontaneous
  Country: US (occurrence: None)
  Receive Date: 20150219
  Receipt Date: 20150219
  Transmission Date: 20150721
  Serious: Yes (Other)
  Sender: FDA-Public Use
  Company Number: 113012

PATIENT
  Age: 11 Year
  Sex: Male
  Weight: 52.16 kg

DRUGS (1)
  1. OXY MAXIMUM ACTION FACE WASH [Suspect]
     Active Substance: BENZOYL PEROXIDE
     Indication: ACNE
     Dosage: 1X FOR 2 DAYS
     Dates: start: 20150126, end: 20150127

REACTIONS (1)
  - Hypersensitivity [None]

NARRATIVE: CASE EVENT DATE: 20150127
